FAERS Safety Report 9876039 (Version 2)
Quarter: 2014Q1

REPORT INFORMATION
  Report Type: Other
  Country: US (occurrence: US)
  Receive Date: 20140206
  Receipt Date: 20140206
  Transmission Date: 20141002
  Serious: No
  Sender: FDA-Public Use
  Company Number: US-ACORDA-ACO_36408_2013

PATIENT
  Age: 73 Year
  Sex: Female

DRUGS (4)
  1. AMPYRA [Suspect]
     Indication: PRODUCT USED FOR UNKNOWN INDICATION
     Dosage: 10 MG, BID
     Route: 065
     Dates: start: 20110406
  2. PROZAC [Concomitant]
     Indication: DEPRESSION
     Dosage: 20 UNK,1 QD
     Route: 048
     Dates: start: 20111214
  3. ALPRAZOLAM [Concomitant]
     Indication: ANXIETY
     Dosage: 0.25,2 BID
     Dates: start: 20100215
  4. LOVASTATIN [Concomitant]
     Indication: BLOOD CHOLESTEROL INCREASED
     Dosage: 40 MG, QD
     Route: 048

REACTIONS (5)
  - Fatigue [Not Recovered/Not Resolved]
  - Gait disturbance [Unknown]
  - Visual impairment [Unknown]
  - Balance disorder [Unknown]
  - Urinary tract infection [Unknown]
